FAERS Safety Report 8252793-3 (Version None)
Quarter: 2012Q2

REPORT INFORMATION
  Report Type: 
  Country: None (occurrence: None)
  Receive Date: 20120402
  Receipt Date: 20111216
  Transmission Date: 20120825
  Serious: No
  Sender: FDA-Public Use
  Company Number: US-ABBOTT-11P-163-0885163-00

PATIENT
  Sex: Male
  Weight: 86.26 kg

DRUGS (5)
  1. PRILOSEC [Concomitant]
     Indication: GASTROOESOPHAGEAL REFLUX DISEASE
  2. ZOLOFT [Concomitant]
     Indication: PRODUCT USED FOR UNKNOWN INDICATION
  3. ANDROGEL [Suspect]
     Dosage: 1 AND 1/2 PACKET DAILY, TOTAL 75 MG
     Dates: start: 20100101
  4. ANDROGEL [Suspect]
     Dosage: 2 PACKETS DAILY, TOTAL 100 MG
     Dates: end: 20111216
  5. ANDROGEL [Suspect]
     Indication: BLOOD TESTOSTERONE DECREASED
     Dosage: 1 PACKET DAILY
     Dates: start: 20090101, end: 20100101

REACTIONS (1)
  - BLOOD TESTOSTERONE DECREASED [None]
